FAERS Safety Report 24120182 (Version 1)
Quarter: 2024Q3

REPORT INFORMATION
  Report Type: Spontaneous
  Country: CN (occurrence: CN)
  Receive Date: 20240722
  Receipt Date: 20240722
  Transmission Date: 20241016
  Serious: Yes (Hospitalization)
  Sender: PFIZER
  Company Number: CN-PFIZER INC-PV202400094417

PATIENT
  Age: 67 Year
  Sex: Male

DRUGS (3)
  1. EPIRUBICIN HYDROCHLORIDE [Suspect]
     Active Substance: EPIRUBICIN HYDROCHLORIDE
     Indication: Diffuse large B-cell lymphoma
     Dosage: 20 MG, 1X/DAY
     Route: 041
     Dates: start: 20240703, end: 20240705
  2. AMIFOSTINE [Suspect]
     Active Substance: AMIFOSTINE
     Indication: Diffuse large B-cell lymphoma
     Dosage: 0.4 G, 1X/DAY
     Route: 041
     Dates: start: 20240703, end: 20240703
  3. CYCLOPHOSPHAMIDE [Concomitant]
     Active Substance: CYCLOPHOSPHAMIDE
     Indication: Diffuse large B-cell lymphoma
     Dosage: 0.6 G, 1X/DAY
     Route: 041
     Dates: start: 20240705, end: 20240705

REACTIONS (2)
  - Hepatic enzyme increased [Unknown]
  - Liver injury [Unknown]

NARRATIVE: CASE EVENT DATE: 20240706
